FAERS Safety Report 7368692-5 (Version None)
Quarter: 2011Q1

REPORT INFORMATION
  Report Type: 
  Country: None (occurrence: None)
  Receive Date: 20110304
  Receipt Date: 20110217
  Transmission Date: 20110831
  Serious: Yes (Other)
  Sender: FDA-Public Use
  Company Number: 2011SP007695

PATIENT
  Age: 42 Year
  Sex: Female

DRUGS (3)
  1. RESTASIS [Concomitant]
  2. NASONEX [Suspect]
     Indication: HYPERSENSITIVITY
     Dosage: 50 MCG, QD, NAS
     Route: 045
     Dates: end: 20100101
  3. ERY-TAB [Concomitant]

REACTIONS (2)
  - ASTHMA [None]
  - PRURITUS GENERALISED [None]
